FAERS Safety Report 4960401-X (Version None)
Quarter: 2006Q1

REPORT INFORMATION
  Report Type: 
  Country: None (occurrence: None)
  Receive Date: 20060328
  Receipt Date: 20060313
  Transmission Date: 20060701
  Serious: Yes (Hospitalization, Other)
  Sender: FDA-Public Use
  Company Number: 2006037086

PATIENT
  Age: 26 Year
  Sex: Male
  Weight: 70 kg

DRUGS (6)
  1. SUTENT [Suspect]
     Indication: METASTATIC RENAL CELL CARCINOMA
     Dosage: 50 MG (50 MG, 1 IN 1 D), ORAL
     Route: 048
     Dates: start: 20060217
  2. OMEPRAZOLE [Concomitant]
  3. BROMOPRIDE (BROMOPRIDE) [Concomitant]
  4. CODEINE (CODEINE) [Concomitant]
  5. SPARTEINE (SPARTEINE) [Concomitant]
  6. HOMATROPINE (HOMATROPINE) [Concomitant]

REACTIONS (8)
  - HAEMOGLOBIN DECREASED [None]
  - INFECTION [None]
  - NEUTROPENIA [None]
  - PNEUMOMEDIASTINUM [None]
  - POSTOPERATIVE WOUND COMPLICATION [None]
  - SKIN NECROSIS [None]
  - SUBCUTANEOUS EMPHYSEMA [None]
  - WOUND DEHISCENCE [None]
